FAERS Safety Report 13116207 (Version 1)
Quarter: 2017Q1

REPORT INFORMATION
  Report Type: Spontaneous
  Country: FR (occurrence: FR)
  Receive Date: 20170116
  Receipt Date: 20170116
  Transmission Date: 20170428
  Serious: Yes (Hospitalization)
  Sender: FDA-Public Use
  Company Number: FR-ROCHE-1878901

PATIENT
  Age: 63 Year
  Sex: Female

DRUGS (20)
  1. EUPANTOL [Suspect]
     Active Substance: PANTOPRAZOLE SODIUM
     Indication: PRODUCT USED FOR UNKNOWN INDICATION
     Route: 048
     Dates: start: 201602, end: 201603
  2. AMIKACIN [Suspect]
     Active Substance: AMIKACIN
     Indication: PYELONEPHRITIS
     Route: 065
     Dates: start: 20160107, end: 20160109
  3. KEPPRA [Concomitant]
     Active Substance: LEVETIRACETAM
     Indication: EPILEPSY
     Route: 048
     Dates: start: 2010
  4. ARIXTRA [Concomitant]
     Active Substance: FONDAPARINUX SODIUM
  5. LYRICA [Concomitant]
     Active Substance: PREGABALIN
     Indication: EPILEPSY
     Route: 048
  6. VANCOMYCIN [Suspect]
     Active Substance: VANCOMYCIN
     Indication: URINARY TRACT INFECTION
     Route: 041
     Dates: start: 20160225, end: 20160225
  7. VIMPAT [Concomitant]
     Active Substance: LACOSAMIDE
     Indication: EPILEPSY
     Route: 048
     Dates: start: 2011
  8. AMLODIPINE [Concomitant]
     Active Substance: AMLODIPINE BESYLATE
  9. DUPHALAC (FRANCE) [Concomitant]
     Active Substance: LACTULOSE
  10. GENTAMYCIN [Suspect]
     Active Substance: GENTAMICIN
     Indication: URINARY TRACT INFECTION
     Route: 065
     Dates: start: 20160223, end: 20160224
  11. ATARAX [Concomitant]
     Active Substance: HYDROXYZINE HYDROCHLORIDE
  12. ROCEPHINE [Suspect]
     Active Substance: CEFTRIAXONE SODIUM
     Indication: PYELONEPHRITIS
     Route: 065
     Dates: start: 20160107, end: 20160116
  13. URBANYL [Concomitant]
     Active Substance: CLOBAZAM
     Route: 048
  14. DAFALGAN [Concomitant]
     Active Substance: ACETAMINOPHEN
  15. TARGOCID [Suspect]
     Active Substance: TEICOPLANIN
     Indication: URINARY TRACT INFECTION
     Route: 042
     Dates: start: 20160225, end: 20160229
  16. TARDYFERON (FRANCE) [Concomitant]
     Active Substance: FERROUS SULFATE\GASTRIC MUCIN
  17. DIFFU K [Concomitant]
     Active Substance: POTASSIUM CHLORIDE
  18. BACTRIM [Suspect]
     Active Substance: SULFAMETHOXAZOLE\TRIMETHOPRIM
     Indication: URINARY TRACT INFECTION
     Route: 048
     Dates: start: 20160223, end: 20160229
  19. ALPRAZOLAM. [Concomitant]
     Active Substance: ALPRAZOLAM
  20. SPASFON (FRANCE) [Concomitant]
     Active Substance: PHLOROGLUCINOL

REACTIONS (2)
  - Toxic skin eruption [Recovering/Resolving]
  - Drug eruption [Recovering/Resolving]

NARRATIVE: CASE EVENT DATE: 20160225
